FAERS Safety Report 21157165 (Version 1)
Quarter: 2022Q3

REPORT INFORMATION
  Report Type: Spontaneous
  Country: US (occurrence: None)
  Receive Date: 20220730
  Receipt Date: 20220730
  Transmission Date: 20221026
  Serious: No
  Sender: FDA-Public Use
  Company Number: None

PATIENT
  Age: 57 Year
  Sex: Female
  Weight: 67.5 kg

DRUGS (11)
  1. TEPEZZA [Suspect]
     Active Substance: TEPROTUMUMAB-TRBW
     Indication: Basedow^s disease
     Dosage: OTHER FREQUENCY : EVERY THREE WEEKS.;?OTHER ROUTE : INFUSION;?
     Route: 050
     Dates: start: 20220408, end: 20220722
  2. SYNTHROID [Concomitant]
     Active Substance: LEVOTHYROXINE SODIUM
  3. Progresterone [Concomitant]
  4. ESTRADIOL [Concomitant]
     Active Substance: ESTRADIOL
  5. XANAX [Concomitant]
     Active Substance: ALPRAZOLAM
  6. METFORMIN [Concomitant]
     Active Substance: METFORMIN HYDROCHLORIDE
  7. VITAMIN B12 [Concomitant]
     Active Substance: CYANOCOBALAMIN
  8. EVENING PRIMROSE OIL\HERBALS [Concomitant]
     Active Substance: EVENING PRIMROSE OIL\HERBALS
  9. CHOLECALCIFEROL [Concomitant]
     Active Substance: CHOLECALCIFEROL
  10. Hydrolized Collagen powder [Concomitant]
  11. Jarrow Ubiquinol (Co-Q10) [Concomitant]

REACTIONS (2)
  - Onychoclasis [None]
  - Condition aggravated [None]

NARRATIVE: CASE EVENT DATE: 20220601
